FAERS Safety Report 12740231 (Version 2)
Quarter: 2016Q3

REPORT INFORMATION
  Report Type: Spontaneous
  Country: US (occurrence: US)
  Receive Date: 20160913
  Receipt Date: 20160925
  Transmission Date: 20161109
  Serious: No
  Sender: FDA-Public Use
  Company Number: US-TEVA-678647USA

PATIENT
  Age: 69 Year
  Sex: Male

DRUGS (4)
  1. PQ RICE SUPPLEMENT [Concomitant]
  2. AZILECT [Suspect]
     Active Substance: RASAGILINE MESYLATE
     Dates: end: 20160621
  3. FISH PILLS [Concomitant]
  4. VITAMIN B COMPLEX [Concomitant]
     Active Substance: CYANOCOBALAMIN\DEXPANTHENOL\NIACINAMIDE\PYRIDOXINE HYDROCHLORIDE\RIBOFLAVIN 5^-PHOSPHATE SODIUM\THIAMINE HYDROCHLORIDE\VITAMIN B COMPLEX

REACTIONS (2)
  - Drug ineffective [Unknown]
  - Decreased interest [Unknown]
